FAERS Safety Report 6993259-8 (Version None)
Quarter: 2010Q3

REPORT INFORMATION
  Report Type: 
  Country: None (occurrence: None)
  Receive Date: 20100917
  Receipt Date: 20091201
  Transmission Date: 20110219
  Serious: No
  Sender: FDA-Public Use
  Company Number: US-ASTRAZENECA-2006UW22645

PATIENT
  Age: 37 Year
  Sex: Female
  Weight: 89.4 kg

DRUGS (3)
  1. SEROQUEL [Suspect]
     Indication: BIPOLAR DISORDER
     Dosage: 100MG TWO TIMES A DAY AND 800MG AT NIGHT
     Route: 048
     Dates: start: 20030101
  2. SEROQUEL [Suspect]
     Indication: DEPRESSION
     Dosage: 100MG TWO TIMES A DAY AND 800MG AT NIGHT
     Route: 048
     Dates: start: 20030101
  3. SEROQUEL [Suspect]
     Indication: POST-TRAUMATIC STRESS DISORDER
     Dosage: 100MG TWO TIMES A DAY AND 800MG AT NIGHT
     Route: 048
     Dates: start: 20030101

REACTIONS (2)
  - OBESITY [None]
  - TYPE 2 DIABETES MELLITUS [None]
